FAERS Safety Report 5587246-4 (Version None)
Quarter: 2008Q1

REPORT INFORMATION
  Report Type: 
  Country: None (occurrence: None)
  Receive Date: 20080110
  Receipt Date: 20080102
  Transmission Date: 20080703
  Serious: Yes (Hospitalization, Other)
  Sender: FDA-Public Use
  Company Number: DK-PFIZER INC-2007088312

PATIENT
  Age: 71 Year
  Sex: Female

DRUGS (2)
  1. ZARATOR [Suspect]
     Indication: BLOOD CHOLESTEROL INCREASED
     Route: 048
     Dates: start: 19930101, end: 20071009
  2. INSULIN [Concomitant]
     Indication: TYPE 2 DIABETES MELLITUS

REACTIONS (7)
  - ARTHRALGIA [None]
  - DIARRHOEA [None]
  - DYSPEPSIA [None]
  - HIP ARTHROPLASTY [None]
  - LOWER LIMB FRACTURE [None]
  - MYALGIA [None]
  - RASH [None]
